FAERS Safety Report 9434490 (Version 1)
Quarter: 2013Q3

REPORT INFORMATION
  Report Type: Spontaneous
  Country: US (occurrence: None)
  Receive Date: 20130731
  Receipt Date: 20130731
  Transmission Date: 20140515
  Serious: No
  Sender: FDA-Public Use
  Company Number: None

PATIENT
  Sex: 0

DRUGS (1)
  1. SYNTHROID [Suspect]

REACTIONS (5)
  - Fibromyalgia [None]
  - Product quality issue [None]
  - Product substitution issue [None]
  - Hypertension [None]
  - Product formulation issue [None]
